FAERS Safety Report 4884334-2 (Version None)
Quarter: 2005Q4

REPORT INFORMATION
  Report Type: 
  Country: None (occurrence: None)
  Receive Date: 20051201
  Receipt Date: 20050831
  Transmission Date: 20060501
  Serious: No
  Sender: FDA-Public Use
  Company Number: 2005PV001572

PATIENT
  Age: 75 Year
  Sex: Male
  Weight: 108.4097 kg

DRUGS (2)
  1. BYETTA [Suspect]
     Indication: DRUG USE FOR UNKNOWN INDICATION
     Dosage: UNKNOWN; UNK; SC     5 MCG;UNK;SC
     Route: 058
     Dates: start: 20050101, end: 20050101
  2. BYETTA [Suspect]
     Indication: DRUG USE FOR UNKNOWN INDICATION
     Dosage: UNKNOWN; UNK; SC     5 MCG;UNK;SC
     Route: 058
     Dates: start: 20051007

REACTIONS (1)
  - OEDEMA [None]
